FAERS Safety Report 4770987-6 (Version None)
Quarter: 2005Q3

REPORT INFORMATION
  Report Type: 
  Country: None (occurrence: None)
  Receive Date: 20050914
  Receipt Date: 20050822
  Transmission Date: 20060218
  Serious: Yes (Death)
  Sender: FDA-Public Use
  Company Number: 2005BH001271

PATIENT

DRUGS (2)
  1. VINORELBINE TARTRATE [Suspect]
     Indication: NON-SMALL CELL LUNG CANCER
     Dosage: 30 MG
  2. PEMETREXED (PEMETREXED) [Suspect]
     Indication: NON-SMALL CELL LUNG CANCER
     Dosage: 500 MG

REACTIONS (3)
  - FEBRILE NEUTROPENIA [None]
  - SEPTIC SHOCK [None]
  - STAPHYLOCOCCAL INFECTION [None]
